FAERS Safety Report 21471555 (Version 1)
Quarter: 2022Q4

REPORT INFORMATION
  Report Type: Report from Study
  Country: US (occurrence: US)
  Receive Date: 20221018
  Receipt Date: 20221018
  Transmission Date: 20230113
  Serious: No
  Sender: FDA-Public Use
  Company Number: US-ABBVIE-22K-163-4261963-00

PATIENT
  Age: 62 Year
  Sex: Female

DRUGS (8)
  1. RINVOQ [Suspect]
     Active Substance: UPADACITINIB
     Indication: Rheumatoid arthritis
     Route: 048
     Dates: start: 20211226
  2. RINVOQ [Suspect]
     Active Substance: UPADACITINIB
     Indication: Rheumatoid arthritis
     Route: 048
  3. RINVOQ [Suspect]
     Active Substance: UPADACITINIB
     Indication: Rheumatoid arthritis
     Route: 048
  4. RINVOQ [Suspect]
     Active Substance: UPADACITINIB
     Indication: Rheumatoid arthritis
     Route: 048
     Dates: end: 2022
  5. RINVOQ [Suspect]
     Active Substance: UPADACITINIB
     Indication: Rheumatoid arthritis
     Route: 048
     Dates: start: 2022
  6. PFIZER-BIONTECH COVID-19 VACCINE [Concomitant]
     Active Substance: TOZINAMERAN
     Indication: COVID-19 immunisation
     Dosage: TIME INTERVAL: 1 TOTAL: 1ST DOSE
     Route: 030
     Dates: start: 20210311, end: 20210311
  7. PFIZER-BIONTECH COVID-19 VACCINE [Concomitant]
     Active Substance: TOZINAMERAN
     Indication: COVID-19 immunisation
     Dosage: TIME INTERVAL: 1 TOTAL: 2ND DOSE
     Route: 030
     Dates: start: 20210401, end: 20210401
  8. PFIZER-BIONTECH COVID-19 VACCINE [Concomitant]
     Active Substance: TOZINAMERAN
     Indication: COVID-19 immunisation
     Dosage: TIME INTERVAL: 1 TOTAL: BOOSTER DOSE
     Route: 030
     Dates: start: 20211018, end: 20211018

REACTIONS (31)
  - Pain in extremity [Unknown]
  - Bone pain [Recovered/Resolved]
  - Muscle spasms [Not Recovered/Not Resolved]
  - Dyspnoea [Unknown]
  - Exercise tolerance decreased [Unknown]
  - Musculoskeletal stiffness [Recovered/Resolved]
  - Blood urine present [Unknown]
  - Sinus disorder [Recovered/Resolved]
  - Nasal congestion [Unknown]
  - Periorbital discomfort [Unknown]
  - Muscle spasms [Not Recovered/Not Resolved]
  - Myalgia [Unknown]
  - Hypersensitivity [Unknown]
  - Inflammatory marker decreased [Unknown]
  - General physical health deterioration [Not Recovered/Not Resolved]
  - Joint stiffness [Not Recovered/Not Resolved]
  - Hordeolum [Unknown]
  - Pain in extremity [Unknown]
  - Dyspnoea [Unknown]
  - Ocular hyperaemia [Unknown]
  - Dacryostenosis acquired [Unknown]
  - Lymphadenopathy [Recovering/Resolving]
  - Sinus disorder [Recovering/Resolving]
  - Throat tightness [Unknown]
  - Drug ineffective [Unknown]
  - Acne [Unknown]
  - Drug ineffective [Unknown]
  - Sinusitis [Not Recovered/Not Resolved]
  - Fatigue [Recovered/Resolved]
  - Sinus disorder [Not Recovered/Not Resolved]
  - Musculoskeletal stiffness [Unknown]

NARRATIVE: CASE EVENT DATE: 20220101
